FAERS Safety Report 6135282-1 (Version None)
Quarter: 2009Q1

REPORT INFORMATION
  Report Type: 
  Country: None (occurrence: None)
  Receive Date: 20090326
  Receipt Date: 20080404
  Transmission Date: 20090719
  Serious: Yes (Other)
  Sender: FDA-Public Use
  Company Number: 08-000529

PATIENT
  Age: 46 Year
  Sex: Female
  Weight: 62.6 kg

DRUGS (3)
  1. ESTRACE [Suspect]
     Indication: VULVOVAGINAL DRYNESS
     Dosage: QD, VAGINAL
     Route: 067
     Dates: start: 20080201
  2. LIPITOR [Concomitant]
  3. PROGESTERONE [Concomitant]

REACTIONS (2)
  - VAGINAL DISCHARGE [None]
  - VAGINAL HAEMORRHAGE [None]
